FAERS Safety Report 15404728 (Version 1)
Quarter: 2018Q3

REPORT INFORMATION
  Report Type: Spontaneous
  Country: US (occurrence: US)
  Receive Date: 20180919
  Receipt Date: 20180919
  Transmission Date: 20181010
  Serious: Yes (Hospitalization, Congenital Anomaly, Other)
  Sender: FDA-Public Use
  Company Number: US-ABBVIE-18K-163-2484816-00

PATIENT
  Age: 0 Year
  Sex: Male

DRUGS (1)
  1. HUMIRA [Suspect]
     Active Substance: ADALIMUMAB
     Indication: EXPOSURE VIA BODY FLUID
     Route: 050

REACTIONS (9)
  - Cerebral ventricle dilatation [Recovered/Resolved]
  - Gastrooesophageal reflux disease [Not Recovered/Not Resolved]
  - Foetal exposure during pregnancy [Unknown]
  - Premature baby [Unknown]
  - Hypotension [Recovered/Resolved]
  - Congenital central nervous system anomaly [Not Recovered/Not Resolved]
  - Blood glucose decreased [Recovered/Resolved]
  - Pulmonary hypoplasia [Recovered/Resolved]
  - Kidney enlargement [Recovered/Resolved]

NARRATIVE: CASE EVENT DATE: 201805
